FAERS Safety Report 24144121 (Version 1)
Quarter: 2024Q3

REPORT INFORMATION
  Report Type: Spontaneous
  Country: CN (occurrence: CN)
  Receive Date: 20240727
  Receipt Date: 20240727
  Transmission Date: 20241017
  Serious: Yes (Hospitalization, Other)
  Sender: ABBVIE
  Company Number: CN-ABBVIE-5849659

PATIENT
  Age: 55 Year
  Sex: Female
  Weight: 45 kg

DRUGS (8)
  1. VENETOCLAX [Suspect]
     Active Substance: VENETOCLAX
     Indication: Leukaemia
     Dosage: 100 MILLIGRAM,?DURATION TEXT: D1
     Route: 048
     Dates: start: 20240701, end: 20240701
  2. VENETOCLAX [Suspect]
     Active Substance: VENETOCLAX
     Indication: Leukaemia
     Dosage: 400 MILLIGRAM?DURATION TEXT: D3-D8
     Route: 048
     Dates: start: 20240703, end: 20240708
  3. VENETOCLAX [Suspect]
     Active Substance: VENETOCLAX
     Indication: Leukaemia
     Dosage: 200 MILLIGRAM,?DURATION TEXT: D2
     Route: 048
     Dates: start: 20240702, end: 20240702
  4. CYTARABINE [Suspect]
     Active Substance: CYTARABINE
     Indication: Acute myeloid leukaemia
     Dosage: 50 MILLIGRAM, CYTARABINE FOR INJECTION, CYTARABINE 180 MG
     Route: 058
     Dates: start: 20240701, end: 20240714
  5. SODIUM CHLORIDE [Concomitant]
     Active Substance: SODIUM CHLORIDE
     Indication: Vehicle solution use
     Dosage: 1 MILLILITER
     Route: 041
     Dates: start: 20240701, end: 20240704
  6. SODIUM CHLORIDE [Concomitant]
     Active Substance: SODIUM CHLORIDE
     Indication: Vehicle solution use
     Dosage: 20 MILLILITER,?SODIUM CHLORIDE INJECTION
     Route: 041
     Dates: start: 20240701, end: 20240704
  7. DAUNORUBICIN HYDROCHLORIDE [Suspect]
     Active Substance: DAUNORUBICIN HYDROCHLORIDE
     Indication: Acute promyelocytic leukaemia
     Dosage: 20 MILLIGRAM, DAUNORUBICIN HYDROCHLORIDE FOR INJECTION, DAUNORUBICIN 80 MG
     Route: 041
     Dates: start: 20240701, end: 20240704
  8. LEUCOGEN [Concomitant]
     Active Substance: LEUCOGEN
     Indication: Haemostasis

REACTIONS (7)
  - White blood cell count decreased [Not Recovered/Not Resolved]
  - Neutrophil count decreased [Not Recovered/Not Resolved]
  - Haemoglobin decreased [Not Recovered/Not Resolved]
  - Myelosuppression [Not Recovered/Not Resolved]
  - Platelet count decreased [Not Recovered/Not Resolved]
  - Granulocyte count decreased [Not Recovered/Not Resolved]
  - Full blood count abnormal [Unknown]

NARRATIVE: CASE EVENT DATE: 20240701
